FAERS Safety Report 9006000 (Version 1)
Quarter: 2013Q1

REPORT INFORMATION
  Report Type: Spontaneous
  Country: US (occurrence: US)
  Receive Date: 20130109
  Receipt Date: 20130109
  Transmission Date: 20140127
  Serious: Yes (Hospitalization, Other)
  Sender: FDA-Public Use
  Company Number: US-FRI-1000041447

PATIENT
  Age: 76 Year
  Sex: Male

DRUGS (2)
  1. TUDORZA PRESSAIR [Suspect]
     Indication: CHRONIC OBSTRUCTIVE PULMONARY DISEASE
     Dosage: 800 MCG
     Route: 055
     Dates: start: 20121223, end: 20130106
  2. ADVAIR [Concomitant]
     Dosage: BID

REACTIONS (2)
  - Chronic obstructive pulmonary disease [Unknown]
  - Nasal congestion [Unknown]
